FAERS Safety Report 9264395 (Version 1)
Quarter: 2013Q2

REPORT INFORMATION
  Report Type: Spontaneous
  Country: FR (occurrence: FR)
  Receive Date: 20130430
  Receipt Date: 20130430
  Transmission Date: 20140414
  Serious: Yes (Hospitalization)
  Sender: FDA-Public Use
  Company Number: FR-B.I. PHARMACEUTICALS,INC./RIDGEFIELD-2013-FF-01268FF

PATIENT
  Age: 66 Year
  Sex: Female

DRUGS (3)
  1. PRADAXA [Suspect]
     Indication: ATRIAL FLUTTER
     Dosage: 300 MG
     Route: 048
     Dates: start: 201301, end: 20130306
  2. LASILIX SPECIAL [Suspect]
     Dosage: 375 MG
     Route: 048
     Dates: end: 20130306
  3. ALDACTONE [Suspect]
     Route: 048
     Dates: end: 20130306

REACTIONS (2)
  - Thrombocytopenic purpura [Recovered/Resolved]
  - Renal failure acute [Not Recovered/Not Resolved]
